FAERS Safety Report 5619057-5 (Version None)
Quarter: 2008Q1

REPORT INFORMATION
  Report Type: 
  Country: None (occurrence: None)
  Receive Date: 20080207
  Receipt Date: 20080129
  Transmission Date: 20080703
  Serious: Yes (Other)
  Sender: FDA-Public Use
  Company Number: US-PURDUE-USA_2007_0030563

PATIENT
  Age: 58 Year
  Sex: Female
  Weight: 82 kg

DRUGS (1)
  1. OXYCONTIN [Suspect]
     Indication: BACK PAIN
     Dosage: 60 MG, TID
     Dates: start: 19980731, end: 20010630

REACTIONS (6)
  - ANGINA PECTORIS [None]
  - CARDIAC DISORDER [None]
  - DEPRESSION [None]
  - DRUG DEPENDENCE [None]
  - SOMNOLENCE [None]
  - SUICIDAL IDEATION [None]
